FAERS Safety Report 18744426 (Version 2)
Quarter: 2021Q1

REPORT INFORMATION
  Report Type: Spontaneous
  Country: US (occurrence: US)
  Receive Date: 20210115
  Receipt Date: 20210127
  Transmission Date: 20210419
  Serious: Yes (Life-Threatening, Hospitalization, Other)
  Sender: FDA-Public Use
  Company Number: US-AUROBINDO-AUR-APL-2021-001483

PATIENT
  Age: 63 Year
  Sex: Male

DRUGS (1)
  1. POTASSIUM CHLORIDE EXTENDED RELEASE TABLETS USP 10 MEQ [Suspect]
     Active Substance: POTASSIUM CHLORIDE
     Indication: PRODUCT USED FOR UNKNOWN INDICATION
     Dosage: 23.4 GRAM, 1 TOTAL
     Route: 048

REACTIONS (4)
  - Mental status changes [Unknown]
  - Atrial fibrillation [Unknown]
  - Intentional overdose [Unknown]
  - Hyperkalaemia [Recovering/Resolving]
